FAERS Safety Report 6249524-5 (Version None)
Quarter: 2009Q2

REPORT INFORMATION
  Report Type: 
  Country: None (occurrence: None)
  Receive Date: 20090625
  Receipt Date: 20090625
  Transmission Date: 20091009
  Serious: No
  Sender: FDA-Public Use
  Company Number: None

PATIENT

DRUGS (2)
  1. ZICAM HOMEPATHIC COLD REMEDY QUICK DISSOLVE CHERRY FLAVORED TABLETS [Suspect]
     Indication: DYSGEUSIA
     Dates: start: 20060701
  2. ZICAM HOMEPATHIC COLD REMEDY QUICK DISSOLVE CHERRY FLAVORED TABLETS [Suspect]
     Indication: PAROSMIA
     Dates: start: 20060701

REACTIONS (3)
  - AGEUSIA [None]
  - ANOSMIA [None]
  - DYSGEUSIA [None]
